FAERS Safety Report 24391468 (Version 1)
Quarter: 2024Q4

REPORT INFORMATION
  Report Type: Spontaneous
  Country: IT (occurrence: IT)
  Receive Date: 20241003
  Receipt Date: 20241003
  Transmission Date: 20250115
  Serious: Yes (Other)
  Sender: AUROBINDO
  Company Number: IT-AUROBINDO-AUR-APL-2024-047536

PATIENT
  Age: 55 Year
  Sex: Female

DRUGS (13)
  1. METRONIDAZOLE [Suspect]
     Active Substance: METRONIDAZOLE
     Indication: Acinetobacter test positive
     Dosage: 500 MILLIGRAM, 3 TIMES A DAY
     Route: 065
  2. CARBOPLATIN [Suspect]
     Active Substance: CARBOPLATIN
     Indication: Invasive ductal breast carcinoma
     Dosage: UNK
     Route: 065
     Dates: start: 202301
  3. AMOXICILLIN\CLAVULANIC ACID [Suspect]
     Active Substance: AMOXICILLIN\CLAVULANIC ACID
     Indication: Acinetobacter test positive
     Dosage: 1 GRAM, 3 TIMES A DAY
     Route: 065
  4. CIPROFLOXACIN [Suspect]
     Active Substance: CIPROFLOXACIN
     Indication: Pseudomonas infection
     Dosage: 750 MILLIGRAM, TWO TIMES A DAY
     Route: 042
  5. CIPROFLOXACIN [Suspect]
     Active Substance: CIPROFLOXACIN
     Indication: Enterobacter infection
  6. MEROPENEM [Suspect]
     Active Substance: MEROPENEM
     Indication: Staphylococcal infection
     Dosage: 1 GRAM, FOUR TIMES/DAY
     Route: 065
  7. PIPERACILLIN AND TAZOBACTAM [Suspect]
     Active Substance: PIPERACILLIN SODIUM\TAZOBACTAM SODIUM
     Indication: Pseudomonas infection
     Dosage: 4.5 GRAM, FOUR TIMES/DAY
     Route: 042
  8. PIPERACILLIN AND TAZOBACTAM [Suspect]
     Active Substance: PIPERACILLIN SODIUM\TAZOBACTAM SODIUM
     Indication: Enterobacter infection
  9. LINEZOLID [Suspect]
     Active Substance: LINEZOLID
     Indication: Staphylococcal infection
     Dosage: 600 MILLIGRAM, TWO TIMES A DAY
     Route: 048
  10. CAPECITABINE [Suspect]
     Active Substance: CAPECITABINE
     Indication: Invasive ductal breast carcinoma
     Dosage: UNK
     Route: 065
     Dates: start: 202209
  11. TRASTUZUMAB DERUXTECAN [Suspect]
     Active Substance: TRASTUZUMAB DERUXTECAN
     Indication: Invasive ductal breast carcinoma
     Dosage: UNK
     Route: 065
     Dates: start: 202209
  12. TRASTUZUMAB [Suspect]
     Active Substance: TRASTUZUMAB
     Indication: Invasive ductal breast carcinoma
     Dosage: UNK
     Route: 065
     Dates: start: 202201
  13. TUCATINIB [Suspect]
     Active Substance: TUCATINIB
     Indication: Invasive ductal breast carcinoma
     Dosage: UNK
     Route: 065
     Dates: start: 202209

REACTIONS (1)
  - Drug ineffective [Unknown]
